FAERS Safety Report 20866399 (Version 1)
Quarter: 2022Q2

REPORT INFORMATION
  Report Type: Report from Study
  Country: US (occurrence: US)
  Receive Date: 20220524
  Receipt Date: 20220524
  Transmission Date: 20220720
  Serious: Yes (Other)
  Sender: FDA-Public Use
  Company Number: US-KOREA IPSEN Pharma-2022-14579

PATIENT
  Sex: Female

DRUGS (1)
  1. SOMATULINE DEPOT [Suspect]
     Active Substance: LANREOTIDE ACETATE
     Indication: Carcinoid tumour of the stomach
     Dosage: 120 MG/0.5 ML
     Route: 058

REACTIONS (3)
  - Diabetes mellitus [Recovering/Resolving]
  - Depressed mood [Not Recovered/Not Resolved]
  - Thyroid disorder [Recovering/Resolving]
